FAERS Safety Report 4338848-4 (Version None)
Quarter: 2004Q2

REPORT INFORMATION
  Report Type: 
  Country: None (occurrence: None)
  Receive Date: 20040409
  Receipt Date: 20040324
  Transmission Date: 20050107
  Serious: Yes (Other)
  Sender: FDA-Public Use
  Company Number: 205759

PATIENT
  Age: 50 Year
  Sex: Female
  Weight: 47 kg

DRUGS (6)
  1. HERCEPTIN [Suspect]
     Indication: BREAST CANCER METASTATIC
     Dosage: SEE IMAGE
     Route: 042
     Dates: start: 20010612, end: 20010612
  2. HERCEPTIN [Suspect]
     Indication: BREAST CANCER METASTATIC
     Dosage: SEE IMAGE
     Route: 042
     Dates: start: 20010621, end: 20031222
  3. PACLITAXEL [Suspect]
     Dosage: 116 MG, QD, INTRAVENOUS
     Route: 042
     Dates: start: 20010612, end: 20020122
  4. BISPHONAL (DISODIUM INCADRONATE) [Concomitant]
  5. FURTULON (DOXIFLURIDINE) [Concomitant]
  6. CYCLOPHOSPHAMIDE [Concomitant]

REACTIONS (4)
  - COLITIS ISCHAEMIC [None]
  - MALAISE [None]
  - PLATELET COUNT DECREASED [None]
  - RHINITIS ALLERGIC [None]
